FAERS Safety Report 7309145-X (Version None)
Quarter: 2011Q1

REPORT INFORMATION
  Report Type: 
  Country: None (occurrence: None)
  Receive Date: 20110211
  Receipt Date: 20110127
  Transmission Date: 20110831
  Serious: Yes (Hospitalization)
  Sender: FDA-Public Use
  Company Number: THQ2011A00489

PATIENT
  Age: 64 Year
  Sex: Female

DRUGS (8)
  1. PROPRAL (PROPRANOLOL HYDROCHLORIDE) [Concomitant]
  2. JANUVIA [Concomitant]
  3. BURANA (IBUPROFEN) [Concomitant]
  4. ACTOS [Suspect]
     Indication: TYPE 2 DIABETES MELLITUS
     Dosage: 15 MG AND 45 MG (60 MG,1 IN 1 D) PER ORAL
     Route: 048
     Dates: start: 20100505
  5. ORLOC (BISOPROLOL FUMARATE) [Concomitant]
  6. SIMVASTATIN [Concomitant]
  7. DIFORMIN RETARD(METFORMIN HYDROCHLORIDE) [Concomitant]
  8. ASPIRIN [Concomitant]

REACTIONS (9)
  - NAUSEA [None]
  - MUSCULOSKELETAL STIFFNESS [None]
  - SWELLING FACE [None]
  - TREATMENT NONCOMPLIANCE [None]
  - FATIGUE [None]
  - MUSCULOSKELETAL PAIN [None]
  - OEDEMA PERIPHERAL [None]
  - EYELID OEDEMA [None]
  - MUSCLE SPASMS [None]
